FAERS Safety Report 12897118 (Version 4)
Quarter: 2017Q1

REPORT INFORMATION
  Report Type: Spontaneous
  Country: JP (occurrence: JP)
  Receive Date: 20161031
  Receipt Date: 20170215
  Transmission Date: 20170428
  Serious: Yes (Death, Life-Threatening, Hospitalization)
  Sender: FDA-Public Use
  Company Number: JP-CELGENEUS-JPN-2014102995

PATIENT
  Age: 54 Year
  Sex: Male

DRUGS (7)
  1. VELCADE [Concomitant]
     Active Substance: BORTEZOMIB
     Indication: PLASMA CELL MYELOMA
     Dosage: 2.616 MILLIGRAM
     Route: 041
     Dates: start: 20120927, end: 20130130
  2. RIZE [Concomitant]
     Active Substance: CLOTIAZEPAM
     Indication: PRODUCT USED FOR UNKNOWN INDICATION
     Dosage: 45 MILLIGRAM
     Route: 048
  3. ALKERAN [Suspect]
     Active Substance: MELPHALAN
     Dosage: 350 MILLIGRAM
     Route: 041
     Dates: start: 201008
  4. TAKEPRON [Concomitant]
     Active Substance: LANSOPRAZOLE
     Indication: PRODUCT USED FOR UNKNOWN INDICATION
     Dosage: 30 MILLIGRAM
     Route: 048
  5. REVLIMID [Suspect]
     Active Substance: LENALIDOMIDE
     Indication: PLASMA CELL MYELOMA
     Dosage: 10 MILLIGRAM
     Route: 048
     Dates: start: 201103, end: 201401
  6. ALKERAN [Suspect]
     Active Substance: MELPHALAN
     Indication: PLASMA CELL MYELOMA RECURRENT
     Dosage: 350 MILLIGRAM
     Route: 041
     Dates: start: 201003
  7. ALOSITOL [Concomitant]
     Active Substance: ALLOPURINOL
     Indication: HYPERURICAEMIA
     Dosage: 900 MILLIGRAM
     Route: 048

REACTIONS (2)
  - Plasma cell myeloma [Fatal]
  - Acute lymphocytic leukaemia [Recovering/Resolving]

NARRATIVE: CASE EVENT DATE: 201401
